FAERS Safety Report 25058569 (Version 1)
Quarter: 2025Q1

REPORT INFORMATION
  Report Type: Spontaneous
  Country: US (occurrence: US)
  Receive Date: 20250310
  Receipt Date: 20250310
  Transmission Date: 20250409
  Serious: Yes (Hospitalization)
  Sender: BOEHRINGER INGELHEIM
  Company Number: US-Komodo Health-a23aa000006A0OIAA0

PATIENT
  Sex: Male

DRUGS (1)
  1. JARDIANCE [Suspect]
     Active Substance: EMPAGLIFLOZIN
     Indication: Product used for unknown indication

REACTIONS (24)
  - Pericardial effusion [Unknown]
  - Pleural effusion [Unknown]
  - Cyst [Unknown]
  - Rash [Unknown]
  - Papule [Unknown]
  - Dizziness [Unknown]
  - Asthenia [Unknown]
  - Drainage [Unknown]
  - Headache [Unknown]
  - Tinnitus [Unknown]
  - Furuncle [Unknown]
  - Ulcer [Unknown]
  - Scar [Unknown]
  - Peripheral swelling [Unknown]
  - Joint swelling [Unknown]
  - Rash erythematous [Unknown]
  - Pruritus [Unknown]
  - Penile swelling [Unknown]
  - Penile swelling [Unknown]
  - Penile erythema [Unknown]
  - Tinea pedis [Unknown]
  - Pruritus [Unknown]
  - Rash [Unknown]
  - Dry skin [Unknown]
